FAERS Safety Report 11910681 (Version 1)
Quarter: 2016Q1

REPORT INFORMATION
  Report Type: Spontaneous
  Country: US (occurrence: None)
  Receive Date: 20160111
  Receipt Date: 20160111
  Transmission Date: 20160526
  Serious: No
  Sender: FDA-Public Use
  Company Number: None

PATIENT
  Age: 82 Year
  Sex: Male

DRUGS (1)
  1. ARIPIPRAZOLE. [Suspect]
     Active Substance: ARIPIPRAZOLE
     Indication: FRONTOTEMPORAL DEMENTIA
     Dosage: 1 PILL ONCE DAILY

REACTIONS (3)
  - Drug ineffective [None]
  - Emotional distress [None]
  - Product substitution issue [None]

NARRATIVE: CASE EVENT DATE: 20150703
